FAERS Safety Report 4631176-9 (Version None)
Quarter: 2005Q2

REPORT INFORMATION
  Report Type: 
  Country: None (occurrence: None)
  Receive Date: 20050407
  Receipt Date: 20050407
  Transmission Date: 20051028
  Serious: No
  Sender: FDA-Public Use
  Company Number: None

PATIENT
  Sex: Male
  Weight: 15.4223 kg

DRUGS (1)
  1. RID [Suspect]
     Indication: LICE INFESTATION
     Dosage: USED ONE TIME ON 2/18/05
     Dates: start: 20050218, end: 20050218

REACTIONS (4)
  - DRUG INEFFECTIVE [None]
  - GASTRIC INFECTION [None]
  - LICE INFESTATION [None]
  - VOMITING [None]
